FAERS Safety Report 9276329 (Version 1)
Quarter: 2012Q4

REPORT INFORMATION
  Report Type: Spontaneous
  Country: GB (occurrence: None)
  Receive Date: 20121109
  Receipt Date: 20121109
  Transmission Date: 20130627
  Serious: Yes (Hospitalization, Other)
  Sender: FDA-Public Use
  Company Number: 2012S1000218

PATIENT
  Age: 51 Year
  Sex: Female

DRUGS (16)
  1. CUBICIN [Suspect]
     Indication: NEUTROPENIA
     Route: 042
     Dates: start: 20120117, end: 20120203
  2. CUBICIN [Suspect]
     Indication: PERIORBITAL CELLULITIS
     Route: 042
     Dates: start: 20120117, end: 20120203
  3. AMILORIDE [Suspect]
     Dates: start: 20120126
  4. FUROSEMIDE (FUROSEMIDE) [Suspect]
  5. CLINDAMYCIN [Concomitant]
  6. MEROPENEM [Concomitant]
  7. AMPHOTERICIN B, LIPOSOME [Concomitant]
  8. FLUCLOXACILLIN [Concomitant]
  9. ACICLOVIR [Concomitant]
  10. CYTARABINE [Concomitant]
  11. DAUNORUBICIN [Concomitant]
  12. DOMPERIDONE [Concomitant]
  13. ITRACONAZOLE [Concomitant]
  14. METFORMIN [Concomitant]
  15. OMEPRAZOLE [Concomitant]
  16. RIFAMPICIN [Concomitant]

REACTIONS (5)
  - Hyponatraemia [None]
  - Hypokalaemia [None]
  - Hyperkalaemia [None]
  - Systemic inflammatory response syndrome [None]
  - Haematoma [None]
